FAERS Safety Report 9391554 (Version 2)
Quarter: 2013Q3

REPORT INFORMATION
  Report Type: Spontaneous
  Country: FR (occurrence: FR)
  Receive Date: 20130709
  Receipt Date: 20130717
  Transmission Date: 20140515
  Serious: Yes (Hospitalization)
  Sender: FDA-Public Use
  Company Number: FR-JNJFOC-20130703152

PATIENT
  Age: 25 Year
  Sex: Female

DRUGS (3)
  1. IXPRIM [Suspect]
     Indication: PAIN
     Route: 048
     Dates: start: 20120926, end: 20120926
  2. CODOLIPRANE [Suspect]
     Indication: PAIN
     Route: 048
     Dates: start: 20120926, end: 20120926
  3. ETHANOL [Concomitant]
     Indication: PRODUCT USED FOR UNKNOWN INDICATION
     Route: 065

REACTIONS (3)
  - Hepatitis acute [Recovering/Resolving]
  - Vomiting [Unknown]
  - Maternal exposure during pregnancy [Unknown]
